FAERS Safety Report 17047137 (Version 2)
Quarter: 2019Q4

REPORT INFORMATION
  Report Type: Spontaneous
  Country: US (occurrence: US)
  Receive Date: 20191119
  Receipt Date: 20191202
  Transmission Date: 20200122
  Serious: No
  Sender: FDA-Public Use
  Company Number: US-BAYER-2019-208155

PATIENT
  Age: 74 Year
  Sex: Female
  Weight: 96 kg

DRUGS (4)
  1. LEVOTHYROXIN [Concomitant]
     Active Substance: LEVOTHYROXINE
     Dosage: UNK
  2. MIRALAX [Suspect]
     Active Substance: POLYETHYLENE GLYCOL 3350
     Indication: GASTROINTESTINAL DISORDER
     Dosage: UNK
     Route: 048
  3. METROSEL [Concomitant]
     Dosage: UNK
  4. CALCIUM;VITAMIN D NOS [Concomitant]
     Dosage: UNK

REACTIONS (2)
  - Drug ineffective [Unknown]
  - Contraindicated product administered [None]
